FAERS Safety Report 16693370 (Version 2)
Quarter: 2019Q3

REPORT INFORMATION
  Report Type: Spontaneous
  Country: PT (occurrence: PT)
  Receive Date: 20190812
  Receipt Date: 20190814
  Transmission Date: 20191004
  Serious: Yes (Life-Threatening, Hospitalization, Other)
  Sender: FDA-Public Use
  Company Number: PHHY2019PT183057

PATIENT
  Age: 17 Year
  Sex: Female

DRUGS (11)
  1. MIDAZOLAM [Concomitant]
     Active Substance: MIDAZOLAM HYDROCHLORIDE
     Indication: SEIZURE
     Route: 065
  2. NORADRENALINE [Concomitant]
     Active Substance: NOREPINEPHRINE
     Indication: CARDIOVASCULAR DISORDER
     Route: 065
  3. PROPAFENONE. [Suspect]
     Active Substance: PROPAFENONE
     Indication: PRODUCT USED FOR UNKNOWN INDICATION
     Dosage: 6 G, QD
     Route: 048
  4. PHENOBARBITAL. [Concomitant]
     Active Substance: PHENOBARBITAL
     Indication: SEIZURE
     Route: 065
  5. DOPAMINE [Concomitant]
     Active Substance: DOPAMINE HYDROCHLORIDE
     Indication: CARDIOVASCULAR DISORDER
     Route: 065
  6. CHARCOAL, ACTIVATED [Concomitant]
     Active Substance: ACTIVATED CHARCOAL
     Indication: INTENTIONAL OVERDOSE
     Route: 065
  7. EPINEPHRINE BITARTRATE [Concomitant]
     Active Substance: EPINEPHRINE BITARTRATE
     Indication: CARDIOVASCULAR DISORDER
     Route: 065
  8. SODIUM HYDROGEN CARBONATE [Concomitant]
     Active Substance: SODIUM BICARBONATE
     Indication: METABOLIC ACIDOSIS
     Route: 065
  9. ATROPINE. [Concomitant]
     Active Substance: ATROPINE
     Indication: CARDIOVASCULAR DISORDER
     Route: 065
  10. PHENYTOIN. [Concomitant]
     Active Substance: PHENYTOIN
     Indication: SEIZURE
     Route: 065
  11. IBUPROFEN. [Suspect]
     Active Substance: IBUPROFEN
     Indication: PRODUCT USED FOR UNKNOWN INDICATION
     Dosage: 1.5 G, QD
     Route: 048

REACTIONS (16)
  - Cardiac arrest [Recovered/Resolved]
  - Partial seizures [Recovered/Resolved]
  - Systolic dysfunction [Recovered/Resolved]
  - Diastolic dysfunction [Recovered/Resolved]
  - Renal injury [Recovered/Resolved]
  - Alanine aminotransferase increased [Recovered/Resolved]
  - Intentional overdose [Recovered/Resolved]
  - Seizure [Recovered/Resolved]
  - Metabolic acidosis [Recovered/Resolved]
  - Bradycardia [Recovered/Resolved]
  - Sinus bradycardia [Recovered/Resolved]
  - Coma [Recovered/Resolved]
  - Myocardial ischaemia [Recovered/Resolved]
  - Generalised tonic-clonic seizure [Recovered/Resolved]
  - Cardio-respiratory arrest [Recovered/Resolved]
  - Cardiogenic shock [Recovered/Resolved]
